FAERS Safety Report 17947079 (Version 1)
Quarter: 2020Q2

REPORT INFORMATION
  Report Type: Spontaneous
  Country: US (occurrence: US)
  Receive Date: 20200625
  Receipt Date: 20200625
  Transmission Date: 20200714
  Serious: Yes (Other)
  Sender: FDA-Public Use
  Company Number: None

PATIENT
  Age: 89 Year
  Sex: Female
  Weight: 54.4 kg

DRUGS (18)
  1. HEPARIN INFUSION 25000 UNITS/ 500 ML [Concomitant]
     Dates: start: 20200608, end: 20200610
  2. ASPIRIN 81 MG [Concomitant]
     Active Substance: ASPIRIN
     Dates: start: 20200608
  3. FUROSEMIDE 40 MG IV ONCE [Concomitant]
     Dates: start: 20200608, end: 20200608
  4. PANTOPRAZOLE 40 MG IV [Concomitant]
     Active Substance: PANTOPRAZOLE SODIUM
     Dates: start: 20200608, end: 20200615
  5. SELENIUM 200 MCG [Concomitant]
     Dates: start: 20200608, end: 20200610
  6. ZINC SULFATE. [Concomitant]
     Active Substance: ZINC SULFATE
     Dates: start: 20200608, end: 20200610
  7. DEXMEDETOMIDINE INFUSION 400 MC/ 100 ML [Concomitant]
     Dates: start: 20200608, end: 20200612
  8. ASCORBIC ACID 1000 MG [Concomitant]
     Dates: start: 20200608, end: 20200614
  9. REMDESIVIR. [Suspect]
     Active Substance: REMDESIVIR
     Indication: COVID-19
     Dosage: ?          OTHER FREQUENCY:ONCE;?
     Route: 042
     Dates: start: 20200608, end: 20200609
  10. DEXAMETHASONE 5 MG IV [Concomitant]
     Dates: start: 20200608, end: 20200609
  11. FOLIC ACID 1 MG [Concomitant]
     Dates: start: 20200608, end: 20200611
  12. VITAMIN E 1000 IU [Concomitant]
     Dates: start: 20200608, end: 20200611
  13. CHOLECALCIFEROL 4000 IU [Concomitant]
     Dates: start: 20200608, end: 20200614
  14. PIPERACILLIN-TAZOBACTAM 2.25 G IV [Concomitant]
     Dates: start: 20200608, end: 20200616
  15. ATORVASTATIN 40 MG [Concomitant]
     Active Substance: ATORVASTATIN
     Dates: start: 20200608, end: 20200610
  16. THIAMINE 250 MG [Concomitant]
     Dates: start: 20200608, end: 20200610
  17. AZITHROMYCIN 500 MG IV [Concomitant]
     Dates: start: 20200608, end: 20200612
  18. NOREPINEPHRINE INFUSION 16 MG/ 250 ML [Concomitant]
     Dates: start: 20200608, end: 20200609

REACTIONS (3)
  - Aspartate aminotransferase increased [None]
  - Alanine aminotransferase increased [None]
  - Therapy cessation [None]

NARRATIVE: CASE EVENT DATE: 20200609
